FAERS Safety Report 16055735 (Version 1)
Quarter: 2019Q1

REPORT INFORMATION
  Report Type: Spontaneous
  Country: GB (occurrence: GB)
  Receive Date: 20190311
  Receipt Date: 20190311
  Transmission Date: 20190418
  Serious: Yes (Other)
  Sender: FDA-Public Use
  Company Number: GB-ACCORD-111535

PATIENT
  Age: 61 Year
  Sex: Female
  Weight: 60 kg

DRUGS (6)
  1. TRAMADOL. [Concomitant]
     Active Substance: TRAMADOL
     Dosage: TAKE 1 OR 2 UP TO FOUR TIMES DAILY.
     Dates: start: 20180814, end: 20180828
  2. EZETIMIBE. [Concomitant]
     Active Substance: EZETIMIBE
     Dates: start: 20180424
  3. LANSOPRAZOLE. [Concomitant]
     Active Substance: LANSOPRAZOLE
     Dates: start: 20180803
  4. FLUCLOXACILLIN [Concomitant]
     Active Substance: FLUCLOXACILLIN
     Dates: start: 20180803, end: 20180810
  5. CLOPIDOGREL [Concomitant]
     Active Substance: CLOPIDOGREL BISULFATE
     Dates: start: 20180627
  6. ATORVASTATIN/ATORVASTATIN CALCIUM [Suspect]
     Active Substance: ATORVASTATIN CALCIUM
     Indication: PRODUCT USED FOR UNKNOWN INDICATION
     Dates: start: 20180502

REACTIONS (2)
  - Hyperkalaemia [Recovered/Resolved]
  - Documented hypersensitivity to administered product [Unknown]

NARRATIVE: CASE EVENT DATE: 20180903
